FAERS Safety Report 8295571-1 (Version None)
Quarter: 2012Q2

REPORT INFORMATION
  Report Type: 
  Country: None (occurrence: None)
  Receive Date: 20120418
  Receipt Date: 20120411
  Transmission Date: 20120825
  Serious: Yes (Hospitalization)
  Sender: FDA-Public Use
  Company Number: US-BAYER-2011-084552

PATIENT
  Age: 30 Year
  Sex: Female

DRUGS (7)
  1. YASMIN [Suspect]
     Indication: ORAL CONTRACEPTION
     Dosage: UNK
     Dates: end: 20030101
  2. VENTOLIN [Concomitant]
  3. PROVENTIL [Concomitant]
  4. FOLIC ACID [Concomitant]
  5. CELEXA [Concomitant]
  6. MINOCYCLINE HCL [Concomitant]
     Indication: ACNE
     Dosage: UNK
     Dates: start: 20020101
  7. CLARITIN [Concomitant]

REACTIONS (7)
  - PAIN [None]
  - GENERAL PHYSICAL HEALTH DETERIORATION [None]
  - MENTAL DISORDER [None]
  - DEEP VEIN THROMBOSIS [None]
  - INJURY [None]
  - EMOTIONAL DISTRESS [None]
  - DEPRESSION [None]
